FAERS Safety Report 9859595 (Version 1)
Quarter: 2014Q1

REPORT INFORMATION
  Report Type: Report from Study
  Country: FR (occurrence: FR)
  Receive Date: 20140131
  Receipt Date: 20140131
  Transmission Date: 20141002
  Serious: Yes (Hospitalization)
  Sender: FDA-Public Use
  Company Number: PHHY2014FR010155

PATIENT
  Age: 45 Year
  Sex: Female

DRUGS (11)
  1. 5-FLUOROURACIL [Suspect]
     Indication: BREAST CANCER
     Dosage: 500 MG
     Route: 042
     Dates: start: 20130110, end: 20130221
  2. 5-FLUOROURACIL [Suspect]
     Dosage: 500 MG
     Route: 042
  3. EPIRUBICIN HYDROCHLORIDE [Suspect]
     Indication: BREAST CANCER
     Dosage: 100 MG
     Route: 042
     Dates: start: 20130110, end: 20130221
  4. EPIRUBICIN HYDROCHLORIDE [Suspect]
     Dosage: 100 MG
     Route: 042
  5. CYCLOPHOSPHAMIDE [Suspect]
     Indication: BREAST CANCER
     Dosage: 500 MG
     Route: 042
     Dates: start: 20130110, end: 20130221
  6. CYCLOPHOSPHAMIDE [Suspect]
     Dosage: 500 MG
     Route: 042
  7. METHYLPREDNISOLONE [Concomitant]
     Dates: start: 20130110
  8. ZOPHREN [Concomitant]
     Dates: start: 20130110
  9. EMEND [Concomitant]
     Dates: start: 20130110
  10. MOPRAL [Concomitant]
     Dates: start: 20130110
  11. CORTANCYL [Concomitant]
     Dates: start: 20130110

REACTIONS (1)
  - Febrile neutropenia [Recovered/Resolved]
